FAERS Safety Report 4612330-9 (Version None)
Quarter: 2005Q2

REPORT INFORMATION
  Report Type: 
  Country: None (occurrence: None)
  Receive Date: 20050308
  Receipt Date: 20041124
  Transmission Date: 20051028
  Serious: Yes (Other)
  Sender: FDA-Public Use
  Company Number: 2004UW22759

PATIENT
  Age: 57 Year
  Sex: Male
  Weight: 94.8 kg

DRUGS (4)
  1. CRESTOR [Suspect]
     Indication: BLOOD CHOLESTEROL INCREASED
     Dosage: 10 MG DAILY PO
     Route: 048
     Dates: start: 20030801, end: 20041103
  2. ACTOS [Concomitant]
  3. ZIAC [Concomitant]
  4. ZETIA [Concomitant]

REACTIONS (3)
  - DIFFICULTY IN WALKING [None]
  - MYALGIA [None]
  - PAIN IN EXTREMITY [None]
